FAERS Safety Report 6463341-2 (Version None)
Quarter: 2009Q4

REPORT INFORMATION
  Report Type: 
  Country: None (occurrence: None)
  Receive Date: 20091130
  Receipt Date: 20090810
  Transmission Date: 20100525
  Serious: Yes (Hospitalization)
  Sender: FDA-Public Use
  Company Number: US-AMGEN-QUU356759

PATIENT
  Sex: Female
  Weight: 52.2 kg

DRUGS (4)
  1. ENBREL [Suspect]
     Indication: RHEUMATOID ARTHRITIS
     Route: 058
     Dates: start: 20090401, end: 20090515
  2. ENBREL [Suspect]
     Indication: ANKYLOSING SPONDYLITIS
  3. METHOTREXATE [Suspect]
     Dates: start: 20081008, end: 20090522
  4. PREDNISONE [Suspect]
     Dates: start: 20081008, end: 20090601

REACTIONS (5)
  - ARTHRITIS [None]
  - ARTHRITIS BACTERIAL [None]
  - BETA HAEMOLYTIC STREPTOCOCCAL INFECTION [None]
  - POST PROCEDURAL INFECTION [None]
  - SYNOVIAL CYST [None]
